FAERS Safety Report 9134231 (Version 1)
Quarter: 2013Q1

REPORT INFORMATION
  Report Type: Spontaneous
  Country: US (occurrence: US)
  Receive Date: 20130304
  Receipt Date: 20130304
  Transmission Date: 20140127
  Serious: Yes (Hospitalization)
  Sender: FDA-Public Use
  Company Number: US-BIOGENIDEC-2013BI018449

PATIENT
  Age: 53 Year
  Sex: Male

DRUGS (2)
  1. TYSABRI [Suspect]
     Indication: MULTIPLE SCLEROSIS
     Route: 042
     Dates: start: 20110913
  2. BENADRYL [Concomitant]
     Indication: PREMEDICATION

REACTIONS (3)
  - Dyspepsia [Recovered/Resolved]
  - Urticaria [Recovered/Resolved]
  - Cholelithiasis [Recovered/Resolved]
